FAERS Safety Report 14146199 (Version 1)
Quarter: 2017Q4

REPORT INFORMATION
  Report Type: Spontaneous
  Country: FR (occurrence: FR)
  Receive Date: 20171031
  Receipt Date: 20171031
  Transmission Date: 20180321
  Serious: Yes (Hospitalization)
  Sender: FDA-Public Use
  Company Number: FR-JNJFOC-20171030091

PATIENT
  Sex: Male

DRUGS (2)
  1. ZEBINIX [Concomitant]
     Active Substance: ESLICARBAZEPINE ACETATE
     Indication: PRODUCT USED FOR UNKNOWN INDICATION
     Route: 065
     Dates: start: 201704
  2. EPITOMAX [Suspect]
     Active Substance: TOPIRAMATE
     Indication: EPILEPSY
     Dosage: 100 MG IN MORNING AND 150 MG IN EVENING
     Route: 048
     Dates: start: 201511, end: 20170929

REACTIONS (2)
  - Disease recurrence [Not Recovered/Not Resolved]
  - Renal colic [Unknown]

NARRATIVE: CASE EVENT DATE: 2016
